FAERS Safety Report 5340552-0 (Version None)
Quarter: 2007Q2

REPORT INFORMATION
  Report Type: 
  Country: None (occurrence: None)
  Receive Date: 20070531
  Receipt Date: 20070523
  Transmission Date: 20071010
  Serious: Yes (Other)
  Sender: FDA-Public Use
  Company Number: SE-PFIZER INC-2007018368

PATIENT
  Sex: Male
  Weight: 98.6 kg

DRUGS (13)
  1. PREDNISOLONE [Suspect]
     Indication: CARDIAC OPERATION
     Dosage: DAILY DOSE:60MG-FREQ:DAILY
  2. PREDNISOLONE [Suspect]
     Indication: WEGENER'S GRANULOMATOSIS
  3. SOLU-MEDROL [Suspect]
     Indication: WEGENER'S GRANULOMATOSIS
  4. FLECAINIDE ACETATE [Concomitant]
  5. CANDESARTAN [Concomitant]
  6. SULFAMETHOXAZOLE W/TRIMETHOPRIM [Concomitant]
  7. CALCICHEW [Concomitant]
  8. ALFACALCIDOL [Concomitant]
  9. OMEPRAZOLE [Concomitant]
  10. FUROSEMIDE [Concomitant]
  11. SODIUM BICARBONATE [Concomitant]
  12. CEPHALOSPORIN C [Concomitant]
  13. CYCLOPHOSPHAMIDE [Concomitant]
     Dates: start: 20070101

REACTIONS (4)
  - BLOOD LACTIC ACID [None]
  - CATARACT [None]
  - TREMOR [None]
  - VISION BLURRED [None]
